FAERS Safety Report 4836994-X (Version None)
Quarter: 2005Q4

REPORT INFORMATION
  Report Type: 
  Country: None (occurrence: None)
  Receive Date: 20051121
  Receipt Date: 20051115
  Transmission Date: 20060501
  Serious: Yes (Other)
  Sender: FDA-Public Use
  Company Number: 000#8#2005-00787

PATIENT
  Age: 80 Year
  Sex: Female

DRUGS (2)
  1. GLYCERYL TRINITRATE (GLYCERYL TRINITRATE) [Suspect]
     Indication: CHEST PAIN
     Dosage: SUBLINGUAL
     Route: 060
  2. GLYCERYL TRINITRATE (GLYCERYL TRINITRATE) [Suspect]
     Indication: HYPERTENSION
     Dosage: SUBLINGUAL
     Route: 060

REACTIONS (5)
  - ASTHENIA [None]
  - BLOOD PRESSURE DECREASED [None]
  - SENSORY LOSS [None]
  - SPINAL CORD INFARCTION [None]
  - URINARY RETENTION [None]
